FAERS Safety Report 20985796 (Version 1)
Quarter: 2022Q2

REPORT INFORMATION
  Report Type: Spontaneous
  Country: US (occurrence: None)
  Receive Date: 20220617
  Receipt Date: 20220617
  Transmission Date: 20220720
  Serious: No
  Sender: FDA-Public Use
  Company Number: None

PATIENT
  Age: 48 Year
  Sex: Male

DRUGS (1)
  1. OTEZLA [Suspect]
     Active Substance: APREMILAST
     Dosage: TAKE 1 TABLET BY MOUTH TWICE DAILY  AS DIRECTED
     Route: 048
     Dates: start: 202108

REACTIONS (1)
  - Device breakage [None]
